FAERS Safety Report 4816882-5 (Version None)
Quarter: 2005Q4

REPORT INFORMATION
  Report Type: 
  Country: None (occurrence: None)
  Receive Date: 20051031
  Receipt Date: 20051031
  Transmission Date: 20060501
  Serious: Yes (Hospitalization)
  Sender: FDA-Public Use
  Company Number: None

PATIENT
  Age: 83 Year
  Sex: Male

DRUGS (12)
  1. GLYBURIDE [Suspect]
     Indication: DIABETES MELLITUS NON-INSULIN-DEPENDENT
     Dosage: 2.5 MG QD
     Dates: start: 20050203
  2. GATIFLOXACIN [Suspect]
     Indication: INFECTION
     Dosage: 400 MG QD
     Dates: start: 20050814
  3. CITALOPRAM [Concomitant]
  4. ACETAMINOPHEN [Concomitant]
  5. DONEPEZIL HCL [Concomitant]
  6. DILTIAZEM HCL [Concomitant]
  7. OXYBUTYNIN [Concomitant]
  8. ZOCOR [Concomitant]
  9. FUROSEMIDE [Concomitant]
  10. ISOSORBIDE [Concomitant]
  11. BACLOFEN [Concomitant]
  12. OMEPRAZOLE [Concomitant]

REACTIONS (1)
  - HYPOGLYCAEMIA [None]
